FAERS Safety Report 24242904 (Version 1)
Quarter: 2024Q3

REPORT INFORMATION
  Report Type: Spontaneous
  Country: FR (occurrence: FR)
  Receive Date: 20240823
  Receipt Date: 20240823
  Transmission Date: 20241017
  Serious: Yes (Life-Threatening, Hospitalization)
  Sender: RANBAXY
  Company Number: FR-AFSSAPS-GR2024000673

PATIENT
  Age: 18 Year
  Sex: Male
  Weight: 75 kg

DRUGS (4)
  1. PAROXETINE [Suspect]
     Active Substance: PAROXETINE
     Indication: Intentional overdose
     Dosage: 80 MILLIGRAM, IN TOTAL
     Route: 048
     Dates: start: 20240520, end: 20240520
  2. CYAMEMAZINE [Suspect]
     Active Substance: CYAMEMAZINE
     Indication: Intentional overdose
     Dosage: 440 MILLIGRAM, IN TOTAL
     Route: 048
     Dates: start: 20240520, end: 20240520
  3. LAMOTRIGINE [Suspect]
     Active Substance: LAMOTRIGINE
     Indication: Intentional overdose
     Dosage: 3125 MILLIGRAM, IN TOTAL
     Route: 048
     Dates: start: 20240520, end: 20240520
  4. LORMETAZEPAM [Suspect]
     Active Substance: LORMETAZEPAM
     Indication: Intentional overdose
     Dosage: 56 MILLIGRAM, IN TOTAL
     Route: 048
     Dates: start: 20240520, end: 20240520

REACTIONS (2)
  - Coma [Recovered/Resolved]
  - Poisoning deliberate [Recovered/Resolved]

NARRATIVE: CASE EVENT DATE: 20240520
